FAERS Safety Report 14779260 (Version 1)
Quarter: 2018Q2

REPORT INFORMATION
  Report Type: Spontaneous
  Country: US (occurrence: US)
  Receive Date: 20180412
  Receipt Date: 20180412
  Transmission Date: 20180711
  Serious: No
  Sender: FDA-Public Use
  Company Number: None

PATIENT
  Age: 71 Year
  Sex: Female
  Weight: 70.31 kg

DRUGS (17)
  1. ARIPIPRAZOLE. [Concomitant]
     Active Substance: ARIPIPRAZOLE
  2. VITAMIN D [Concomitant]
     Active Substance: CHOLECALCIFEROL
  3. BENAZEPRIL [Concomitant]
     Active Substance: BENAZEPRIL HYDROCHLORIDE
  4. POTASSIUM CHLORIDE. [Concomitant]
     Active Substance: POTASSIUM CHLORIDE
  5. MULTI-VITAMIN [Concomitant]
     Active Substance: .ALPHA.-TOCOPHEROL ACETATE, DL-\ASCORBIC ACID\CYANOCOBALAMIN\FLUORIDE ION\FOLIC ACID\NIACIN\PYRIDOXINE\RIBOFLAVIN\THIAMINE\VITAMIN A\VITAMIN D
  6. PAROXETINE. [Concomitant]
     Active Substance: PAROXETINE
  7. DILTIAZEM. [Concomitant]
     Active Substance: DILTIAZEM
  8. ALPRAZOLAM. [Concomitant]
     Active Substance: ALPRAZOLAM
  9. CLONAZEPAM. [Concomitant]
     Active Substance: CLONAZEPAM
  10. VITAMIN B [Concomitant]
     Active Substance: VITAMIN B
  11. IMIQUIMOD. [Suspect]
     Active Substance: IMIQUIMOD
     Indication: MALIGNANT MELANOMA
  12. METOPROLOL. [Concomitant]
     Active Substance: METOPROLOL
  13. HYDROMORPHONE [Concomitant]
     Active Substance: HYDROMORPHONE
  14. BACLOFEN. [Concomitant]
     Active Substance: BACLOFEN
  15. FUROSEMIDE. [Concomitant]
     Active Substance: FUROSEMIDE
  16. TYLENOL [Concomitant]
     Active Substance: ACETAMINOPHEN
  17. BENDARYL [Concomitant]

REACTIONS (3)
  - Influenza like illness [None]
  - Photopsia [None]
  - Nausea [None]

NARRATIVE: CASE EVENT DATE: 20170928
